FAERS Safety Report 16377518 (Version 5)
Quarter: 2021Q1

REPORT INFORMATION
  Report Type: Spontaneous
  Country: US (occurrence: US)
  Receive Date: 20190531
  Receipt Date: 20210226
  Transmission Date: 20210419
  Serious: No
  Sender: FDA-Public Use
  Company Number: US-PFIZER INC-2019232893

PATIENT
  Age: 64 Year
  Sex: Female
  Weight: 68 kg

DRUGS (2)
  1. IBRANCE [Suspect]
     Active Substance: PALBOCICLIB
     Indication: BREAST CANCER
     Dosage: 125 MG, CYCLIC (DAILY X 21 DAYS THEN 7 DAYS OFF,1?21, Q28D)
     Route: 048
     Dates: start: 201708
  2. IBRANCE [Suspect]
     Active Substance: PALBOCICLIB
     Dosage: 100 MG

REACTIONS (9)
  - Fatigue [Not Recovered/Not Resolved]
  - Product physical issue [Unknown]
  - Arthralgia [Unknown]
  - Eye irritation [Unknown]
  - Cognitive disorder [Not Recovered/Not Resolved]
  - Headache [Unknown]
  - Nausea [Unknown]
  - Lacrimation increased [Unknown]
  - Neoplasm progression [Unknown]

NARRATIVE: CASE EVENT DATE: 20191011
